FAERS Safety Report 6463211-X (Version None)
Quarter: 2009Q4

REPORT INFORMATION
  Report Type: 
  Country: None (occurrence: None)
  Receive Date: 20091123
  Receipt Date: 20091110
  Transmission Date: 20100525
  Serious: Yes (Hospitalization)
  Sender: FDA-Public Use
  Company Number: 2009SP036034

PATIENT
  Age: 42 Year
  Sex: Female

DRUGS (5)
  1. REMERON [Suspect]
     Indication: DRUG USE FOR UNKNOWN INDICATION
     Dosage: 15 MG; QD;PO
     Route: 048
     Dates: start: 20091016, end: 20091019
  2. SILECE [Concomitant]
  3. HALCION [Concomitant]
  4. VEGETAMIN A [Concomitant]
  5. VEGETAMIN B [Concomitant]

REACTIONS (3)
  - ALTERED STATE OF CONSCIOUSNESS [None]
  - HYPERSOMNIA [None]
  - INSOMNIA [None]
